FAERS Safety Report 9745717 (Version 1)
Quarter: 2013Q4

REPORT INFORMATION
  Report Type: Spontaneous
  Country: US (occurrence: None)
  Receive Date: 20131206
  Receipt Date: 20131206
  Transmission Date: 20140711
  Serious: No
  Sender: FDA-Public Use
  Company Number: None

PATIENT
  Age: 84 Year
  Sex: Female

DRUGS (1)
  1. PROLIA [Suspect]
     Indication: OSTEOPOROSIS
     Dosage: 1 INJECTION
     Route: 051
     Dates: start: 20121203

REACTIONS (8)
  - Flatulence [None]
  - Pollakiuria [None]
  - Back pain [None]
  - Pain in extremity [None]
  - Pain in extremity [None]
  - Erythema [None]
  - Muscle spasms [None]
  - Asthenia [None]
